FAERS Safety Report 6536850-5 (Version None)
Quarter: 2010Q1

REPORT INFORMATION
  Report Type: 
  Country: None (occurrence: None)
  Receive Date: 20100113
  Receipt Date: 20100104
  Transmission Date: 20100710
  Serious: Yes (Hospitalization)
  Sender: FDA-Public Use
  Company Number: US-ABBOTT-09P-163-0567747-00

PATIENT
  Sex: Female
  Weight: 70.37 kg

DRUGS (17)
  1. HUMIRA [Suspect]
     Indication: CROHN'S DISEASE
     Route: 058
     Dates: start: 20080101, end: 20081201
  2. HUMIRA [Suspect]
     Route: 058
     Dates: start: 20090301
  3. LORA TAB [Concomitant]
     Indication: PAIN
     Dosage: AS NEEDED EVERY 8 HOURS
  4. PREDNISONE [Concomitant]
     Indication: DRUG USE FOR UNKNOWN INDICATION
  5. PREDNISONE [Concomitant]
  6. CELEXA [Concomitant]
     Indication: DRUG USE FOR UNKNOWN INDICATION
  7. LOMOTIL [Concomitant]
     Indication: DIARRHOEA
     Dosage: EVERY FOUR HOURS AS NEEDED
  8. ATIVAN [Concomitant]
     Indication: DRUG USE FOR UNKNOWN INDICATION
  9. PREMPRO [Concomitant]
     Indication: DRUG USE FOR UNKNOWN INDICATION
  10. CALTRATE [Concomitant]
     Indication: DRUG USE FOR UNKNOWN INDICATION
  11. PHENERGAN HCL [Concomitant]
     Indication: DRUG USE FOR UNKNOWN INDICATION
  12. TOPRAL [Concomitant]
     Indication: DRUG USE FOR UNKNOWN INDICATION
  13. CYMBALTA [Concomitant]
     Indication: DRUG USE FOR UNKNOWN INDICATION
  14. AMBIEN [Concomitant]
     Indication: DRUG USE FOR UNKNOWN INDICATION
  15. XANAX [Concomitant]
     Indication: DRUG USE FOR UNKNOWN INDICATION
     Dosage: TWICE A DAY AS NEEDED
  16. HYDROCORTISONE [Concomitant]
     Indication: DRUG USE FOR UNKNOWN INDICATION
  17. REMERON [Concomitant]
     Indication: DRUG USE FOR UNKNOWN INDICATION

REACTIONS (18)
  - ANAEMIA [None]
  - BLOOD ALBUMIN DECREASED [None]
  - BLOOD POTASSIUM DECREASED [None]
  - COUGH [None]
  - CROHN'S DISEASE [None]
  - DECREASED APPETITE [None]
  - ELECTROLYTE IMBALANCE [None]
  - GASTROENTERITIS [None]
  - HAEMATOCRIT DECREASED [None]
  - HYPERALBUMINAEMIA [None]
  - MALNUTRITION [None]
  - MENTAL STATUS CHANGES [None]
  - NAUSEA [None]
  - RENAL FAILURE [None]
  - UPPER RESPIRATORY TRACT INFECTION [None]
  - VENTRICULAR TACHYCARDIA [None]
  - VOMITING [None]
  - WEIGHT DECREASED [None]
